FAERS Safety Report 6205832-5 (Version None)
Quarter: 2009Q2

REPORT INFORMATION
  Report Type: 
  Country: None (occurrence: None)
  Receive Date: 20090527
  Receipt Date: 20090501
  Transmission Date: 20091009
  Serious: No
  Sender: FDA-Public Use
  Company Number: US-ABBOTT-09P-163-0570992-00

PATIENT
  Sex: Male
  Weight: 86.26 kg

DRUGS (5)
  1. SIMCOR [Suspect]
     Indication: BLOOD CHOLESTEROL INCREASED
     Dosage: FORM: 500/20MG
     Route: 048
     Dates: start: 20081201, end: 20090401
  2. SIMCOR [Suspect]
     Dosage: FORM: 500/20MG
     Route: 048
     Dates: start: 20090401
  3. SYNTHROID [Concomitant]
     Indication: DRUG USE FOR UNKNOWN INDICATION
  4. UNNAMED BLOOD PRESSURE MEDICATION [Concomitant]
     Indication: HYPERTENSION
  5. UNNAMED DIURETIC [Concomitant]
     Indication: DRUG USE FOR UNKNOWN INDICATION

REACTIONS (3)
  - FLUSHING [None]
  - MUSCULOSKELETAL PAIN [None]
  - TENDONITIS [None]
